FAERS Safety Report 8773207 (Version 2)
Quarter: 2012Q4

REPORT INFORMATION
  Report Type: Report from Study
  Country: US (occurrence: US)
  Receive Date: 20120907
  Receipt Date: 20120911
  Transmission Date: 20130627
  Serious: Yes (Hospitalization, Disabling)
  Sender: FDA-Public Use
  Company Number: US-JNJFOC-20120901702

PATIENT
  Age: 17 Year
  Sex: Female
  Weight: 57.8 kg

DRUGS (10)
  1. INFLIXIMAB, RECOMBINANT [Suspect]
     Indication: INFLAMMATORY BOWEL DISEASE
     Route: 042
     Dates: start: 20111208
  2. INFLIXIMAB, RECOMBINANT [Suspect]
     Indication: INFLAMMATORY BOWEL DISEASE
     Route: 042
     Dates: start: 20100409
  3. MIRALAX [Concomitant]
  4. PRENATAL VITAMIN [Concomitant]
  5. PROBIOTICS [Concomitant]
  6. TYLENOL [Concomitant]
  7. BENEFIBER [Concomitant]
  8. LEVAQUIN [Concomitant]
  9. LORATADINE [Concomitant]
  10. DAYQUIL [Concomitant]

REACTIONS (1)
  - Vasomotor rhinitis [Recovered/Resolved]
